FAERS Safety Report 14326415 (Version 2)
Quarter: 2018Q2

REPORT INFORMATION
  Report Type: Report from Study
  Country: JP (occurrence: JP)
  Receive Date: 20171227
  Receipt Date: 20180625
  Transmission Date: 20180711
  Serious: Yes (Death, Other)
  Sender: FDA-Public Use
  Company Number: JP-ALXN-A201714638AA

PATIENT
  Age: 78 Year
  Sex: Male

DRUGS (20)
  1. KAYTWO N [Concomitant]
     Active Substance: MENATETRENONE
     Indication: AORTIC ANEURYSM
     Dosage: 4 DF, QD
     Route: 041
     Dates: start: 20171214, end: 20171214
  2. SULBACILLIN [Concomitant]
     Active Substance: AMPICILLIN SODIUM\SULBACTAM SODIUM
     Indication: AORTIC ANEURYSM
     Dosage: 3 G, QD
     Route: 041
     Dates: start: 20171214, end: 20171214
  3. BOSMIN                             /00003901/ [Concomitant]
     Active Substance: EPINEPHRINE
     Indication: BLOOD PRESSURE MANAGEMENT
     Dosage: 0.1 MG/L, Q1H
     Route: 041
     Dates: start: 20171218, end: 20171219
  4. NICARDIPINE HYDROCHLORIDE. [Concomitant]
     Active Substance: NICARDIPINE HYDROCHLORIDE
     Indication: AORTIC ANEURYSM
     Dosage: 1.8 MG, DAILY
     Route: 041
     Dates: start: 20171214, end: 20171214
  5. METHYLPREDNISOLONE. [Concomitant]
     Active Substance: METHYLPREDNISOLONE
     Indication: AORTIC ANEURYSM
     Dosage: 1.5 G, QD
     Route: 041
     Dates: start: 20171214, end: 20171214
  6. HEPARIN [Concomitant]
     Active Substance: HEPARIN SODIUM
     Indication: EXTRACORPOREAL MEMBRANE OXYGENATION
     Dosage: 10000 DF, QD
     Route: 042
     Dates: start: 20171215, end: 20171215
  7. DOBUTREX [Concomitant]
     Active Substance: DOBUTAMINE HYDROCHLORIDE
     Indication: AORTIC ANEURYSM
     Dosage: 15 MG, Q1H
     Route: 041
     Dates: start: 20171216, end: 20171221
  8. SOLIRIS [Suspect]
     Active Substance: ECULIZUMAB
     Indication: HAEMOLYTIC URAEMIC SYNDROME
     Dosage: 900 MG, QW
     Route: 041
     Dates: start: 20160622, end: 20160713
  9. NITROGLYCERIN. [Concomitant]
     Active Substance: NITROGLYCERIN
     Indication: AORTIC ANEURYSM
     Dosage: 9 ML, Q1H
     Route: 041
     Dates: start: 20171214, end: 20171214
  10. MIDAZOLAM [Concomitant]
     Active Substance: MIDAZOLAM HYDROCHLORIDE
     Indication: AORTIC ANEURYSM
     Dosage: 2.5 MG, BID
     Route: 042
     Dates: start: 20171214, end: 20171214
  11. HEPARIN [Concomitant]
     Active Substance: HEPARIN SODIUM
     Indication: AORTIC ANEURYSM
     Dosage: 15000 DF, QD
     Route: 042
     Dates: start: 20171214, end: 20171214
  12. HEPARIN [Concomitant]
     Active Substance: HEPARIN SODIUM
     Dosage: 1.2 ML, Q1H
     Route: 041
     Dates: start: 20171215, end: 20171217
  13. FAMOTIDINE. [Concomitant]
     Active Substance: FAMOTIDINE
     Indication: GASTRITIS PROPHYLAXIS
     Dosage: 20 MG, QD
     Route: 042
     Dates: start: 20171215, end: 20171216
  14. SOLIRIS [Suspect]
     Active Substance: ECULIZUMAB
     Dosage: 1200 MG, Q2W
     Route: 041
     Dates: start: 20160720
  15. PROTAMINE [Concomitant]
     Active Substance: PROTAMINE
     Indication: AORTIC ANEURYSM
     Dosage: 100 MG, QD
     Route: 042
     Dates: start: 20171215, end: 20171215
  16. SOLU-CORTEF [Concomitant]
     Active Substance: HYDROCORTISONE SODIUM SUCCINATE
     Indication: PRODUCT USED FOR UNKNOWN INDICATION
     Dosage: 100 MG, BID
     Route: 041
     Dates: start: 20171215, end: 20171221
  17. NEOSYNESIN                         /00116302/ [Concomitant]
     Indication: AORTIC ANEURYSM
     Dosage: 1 MG, QD
     Route: 042
     Dates: start: 20171215, end: 20171215
  18. SULBACILLIN [Concomitant]
     Active Substance: AMPICILLIN SODIUM\SULBACTAM SODIUM
     Indication: INFECTION PROPHYLAXIS
     Dosage: 0.75 G, BID
     Route: 041
     Dates: start: 20171214, end: 20171221
  19. GLYCERIN F [Concomitant]
     Indication: PROPHYLAXIS
     Dosage: 200 ML, BID
     Route: 041
     Dates: start: 20171215, end: 20171217
  20. OMEPRAZOLE. [Concomitant]
     Active Substance: OMEPRAZOLE
     Indication: GASTRITIS PROPHYLAXIS
     Dosage: 20 MG, QD
     Route: 041
     Dates: start: 20171217, end: 20171221

REACTIONS (2)
  - Brain oedema [Fatal]
  - Renal impairment [Fatal]

NARRATIVE: CASE EVENT DATE: 20171216
